FAERS Safety Report 5812762-7 (Version None)
Quarter: 2008Q3

REPORT INFORMATION
  Report Type: 
  Country: None (occurrence: None)
  Receive Date: 20080714
  Receipt Date: 20080702
  Transmission Date: 20090109
  Serious: Yes (Other)
  Sender: FDA-Public Use
  Company Number: 2008AP000860

PATIENT
  Sex: Female
  Weight: 72.5755 kg

DRUGS (6)
  1. BALSALAZIDE DISODIUM [Suspect]
     Indication: CROHN'S DISEASE
     Dosage: 6 CAP; QD; PO; 9 CAP; QD; PO
     Route: 048
     Dates: end: 20080301
  2. BALSALAZIDE DISODIUM [Suspect]
     Indication: CROHN'S DISEASE
     Dosage: 6 CAP; QD; PO; 9 CAP; QD; PO
     Route: 048
     Dates: start: 20070201
  3. LEVOTHYROXINE SODIUM [Concomitant]
  4. VITAMIN TAB [Concomitant]
  5. MESALAMINE [Concomitant]
  6. BALSALAZIDE DISODIUM [Concomitant]

REACTIONS (4)
  - DRUG INEFFECTIVE [None]
  - HAEMATOCHEZIA [None]
  - MUSCLE SPASMS [None]
  - RECTAL TENESMUS [None]
